FAERS Safety Report 20444808 (Version 1)
Quarter: 2022Q1

REPORT INFORMATION
  Report Type: Spontaneous
  Country: US (occurrence: None)
  Receive Date: 20220207
  Receipt Date: 20220207
  Transmission Date: 20220423
  Serious: Yes (Disabling, Other)
  Sender: FDA-Public Use
  Company Number: None

PATIENT
  Age: 39 Year
  Sex: Male
  Weight: 83.25 kg

DRUGS (1)
  1. SUBOXONE [Suspect]
     Active Substance: BUPRENORPHINE HYDROCHLORIDE\NALOXONE HYDROCHLORIDE
     Indication: Dependence
     Dosage: OTHER QUANTITY : 2 PATCH(ES);?FREQUENCY : TWICE A DAY;?
     Route: 060
     Dates: start: 20160401, end: 20210614

REACTIONS (4)
  - Tooth fracture [None]
  - Tooth discolouration [None]
  - Dental discomfort [None]
  - Feeding disorder [None]

NARRATIVE: CASE EVENT DATE: 20190102
